FAERS Safety Report 4503383-7 (Version None)
Quarter: 2004Q4

REPORT INFORMATION
  Report Type: 
  Country: None (occurrence: None)
  Receive Date: 20041117
  Receipt Date: 20041112
  Transmission Date: 20050328
  Serious: Yes (Other)
  Sender: FDA-Public Use
  Company Number: US-GLAXOSMITHKLINE-A0534181A

PATIENT
  Age: 64 Year
  Sex: Female

DRUGS (3)
  1. COREG [Suspect]
     Dosage: 12.5MG PER DAY
     Route: 048
     Dates: start: 20041111
  2. LASIX [Concomitant]
  3. ASPIRIN [Concomitant]

REACTIONS (7)
  - ANGINA PECTORIS [None]
  - FEELING ABNORMAL [None]
  - IMMOBILE [None]
  - NAUSEA [None]
  - OEDEMA PERIPHERAL [None]
  - PAIN IN EXTREMITY [None]
  - VOMITING [None]
